FAERS Safety Report 8304833-0 (Version None)
Quarter: 2012Q2

REPORT INFORMATION
  Report Type: 
  Country: None (occurrence: None)
  Receive Date: 20120423
  Receipt Date: 20120417
  Transmission Date: 20120825
  Serious: Yes (Other)
  Sender: FDA-Public Use
  Company Number: US-PFIZER INC-2012095618

PATIENT
  Sex: Female
  Weight: 116 kg

DRUGS (4)
  1. ZOLOFT [Suspect]
     Indication: DEPRESSION
  2. PREDNISONE [Concomitant]
     Indication: ASTHMA
     Dosage: UNK, AS NEEDED
  3. ZOLOFT [Suspect]
     Indication: POST-TRAUMATIC STRESS DISORDER
     Dosage: 150 MG, 1X/DAY
     Route: 048
     Dates: start: 19970101, end: 20070101
  4. ALBUTEROL [Concomitant]
     Indication: ASTHMA
     Dosage: UNK

REACTIONS (5)
  - BLOOD CHOLESTEROL INCREASED [None]
  - ANAEMIA [None]
  - LUNG NEOPLASM [None]
  - ABDOMINAL NEOPLASM [None]
  - GASTROOESOPHAGEAL REFLUX DISEASE [None]
